FAERS Safety Report 22525861 (Version 1)
Quarter: 2023Q2

REPORT INFORMATION
  Report Type: Spontaneous
  Country: US (occurrence: None)
  Receive Date: 20230605
  Receipt Date: 20230605
  Transmission Date: 20230722
  Serious: Yes (Life-Threatening, Hospitalization, Other)
  Sender: FDA-Public Use
  Company Number: None

PATIENT
  Age: 79 Year
  Sex: Male
  Weight: 91.8 kg

DRUGS (4)
  1. DABRAFENIB [Suspect]
     Active Substance: DABRAFENIB
     Indication: Malignant melanoma
     Dosage: FREQUENCY : TWICE A DAY;?
     Route: 048
     Dates: start: 20230413, end: 20230520
  2. TRAMETINIB [Suspect]
     Active Substance: TRAMETINIB
     Indication: Malignant melanoma
     Dosage: FREQUENCY : DAILY;?
     Route: 048
     Dates: start: 20230413, end: 20230520
  3. IBUPROFEN [Suspect]
     Active Substance: IBUPROFEN
     Dates: start: 20230517, end: 20230520
  4. OLMESARTAN [Concomitant]
     Active Substance: OLMESARTAN
     Dates: start: 20210601, end: 20230520

REACTIONS (6)
  - Encephalopathy [None]
  - Renal failure [None]
  - Dehydration [None]
  - Hepatic enzyme abnormal [None]
  - Seizure [None]
  - Subdural haemorrhage [None]

NARRATIVE: CASE EVENT DATE: 20230521
